FAERS Safety Report 8350991-1 (Version None)
Quarter: 2012Q2

REPORT INFORMATION
  Report Type: 
  Country: None (occurrence: None)
  Receive Date: 20120510
  Receipt Date: 20120508
  Transmission Date: 20120825
  Serious: Yes (Other)
  Sender: FDA-Public Use
  Company Number: PHHY2012US039085

PATIENT
  Age: 70 Year
  Sex: Female

DRUGS (4)
  1. BUFFERIN [Suspect]
     Indication: PAIN
     Dosage: 1-2 AT NIGHT
     Route: 048
  2. BUFFERIN [Suspect]
     Indication: ARTHRITIS
  3. BUFFERIN [Suspect]
     Indication: INFLUENZA
  4. BUFFERIN [Suspect]
     Indication: NASOPHARYNGITIS

REACTIONS (2)
  - INCORRECT DRUG ADMINISTRATION DURATION [None]
  - DRUG DEPENDENCE [None]
